FAERS Safety Report 19725868 (Version 1)
Quarter: 2021Q3

REPORT INFORMATION
  Report Type: Spontaneous
  Country: US (occurrence: US)
  Receive Date: 20210819
  Receipt Date: 20210819
  Transmission Date: 20211014
  Serious: No
  Sender: FDA-Public Use
  Company Number: US-MANNKIND CORPORATION-2021MK000040

PATIENT
  Age: 59 Year
  Sex: Female

DRUGS (3)
  1. AFREZZA [Suspect]
     Active Substance: INSULIN HUMAN
     Dates: start: 20210224
  2. AFREZZA [Suspect]
     Active Substance: INSULIN HUMAN
     Dates: start: 20210224
  3. AFREZZA [Suspect]
     Active Substance: INSULIN HUMAN
     Indication: TYPE 1 DIABETES MELLITUS
     Dates: start: 20210224

REACTIONS (1)
  - Cough [Recovered/Resolved]

NARRATIVE: CASE EVENT DATE: 20210224
